FAERS Safety Report 15754767 (Version 1)
Quarter: 2018Q4

REPORT INFORMATION
  Report Type: Spontaneous
  Country: US (occurrence: US)
  Receive Date: 20181224
  Receipt Date: 20181224
  Transmission Date: 20190205
  Serious: No
  Sender: FDA-Public Use
  Company Number: US-TEVA-2018-US-988310

PATIENT
  Sex: Female

DRUGS (1)
  1. CLONAZEPAM ACTAVIS [Suspect]
     Active Substance: CLONAZEPAM
     Dates: start: 20181120

REACTIONS (7)
  - Drug ineffective [Unknown]
  - Emotional disorder [Unknown]
  - Chest pain [Unknown]
  - Palpitations [Unknown]
  - Feeling abnormal [Unknown]
  - Gait inability [Unknown]
  - Anger [Unknown]

NARRATIVE: CASE EVENT DATE: 20181120
